FAERS Safety Report 6770087-X (Version None)
Quarter: 2010Q2

REPORT INFORMATION
  Report Type: 
  Country: None (occurrence: None)
  Receive Date: 20100615
  Receipt Date: 20100607
  Transmission Date: 20101027
  Serious: Yes (Hospitalization)
  Sender: FDA-Public Use
  Company Number: JP-ABBOTT-09P-087-0616550-00

PATIENT
  Age: 71 Year
  Sex: Female

DRUGS (8)
  1. HUMIRA [Suspect]
     Indication: RHEUMATOID ARTHRITIS
     Route: 058
     Dates: start: 20090824, end: 20091204
  2. ALENDRONATE SODIUM [Concomitant]
     Indication: OSTEOPOROSIS PROPHYLAXIS
  3. ETIZOLAM [Concomitant]
     Indication: INSOMNIA
  4. ETIZOLAM [Concomitant]
     Indication: PROPHYLAXIS
  5. PREDNISOLONE [Concomitant]
     Indication: RHEUMATOID ARTHRITIS
  6. FERROUS FUMARATE [Concomitant]
     Indication: ANAEMIA
  7. FERROUS FUMARATE [Concomitant]
     Indication: PROPHYLAXIS
  8. FURSULTIAMINE [Concomitant]
     Indication: VITAMIN SUPPLEMENTATION

REACTIONS (3)
  - CELLULITIS [None]
  - MOVEMENT DISORDER [None]
  - SKIN ULCER [None]
